FAERS Safety Report 5301184-3 (Version None)
Quarter: 2007Q2

REPORT INFORMATION
  Report Type: 
  Country: None (occurrence: None)
  Receive Date: 20070411
  Receipt Date: 20070326
  Transmission Date: 20071010
  Serious: Yes (Other)
  Sender: FDA-Public Use
  Company Number: US019698

PATIENT
  Age: 59 Year
  Sex: Female

DRUGS (3)
  1. TRISENOX [Suspect]
     Indication: ACUTE PROMYELOCYTIC LEUKAEMIA
     Dosage: 7.065 MG QD INTRAVENOUS DRIP
     Route: 041
     Dates: start: 20061130, end: 20061224
  2. METHOTREXATE [Suspect]
     Dosage: 15 MG INTRATHECAL
     Route: 037
     Dates: start: 20061206, end: 20061206
  3. PREDNISOLONE ACETATE [Concomitant]

REACTIONS (5)
  - ALANINE AMINOTRANSFERASE INCREASED [None]
  - ASPARTATE AMINOTRANSFERASE INCREASED [None]
  - ELECTROCARDIOGRAM QT CORRECTED INTERVAL PROLONGED [None]
  - HEPATIC FUNCTION ABNORMAL [None]
  - PANCYTOPENIA [None]
